FAERS Safety Report 23424830 (Version 2)
Quarter: 2024Q2

REPORT INFORMATION
  Report Type: Report from Study
  Country: RU (occurrence: RU)
  Receive Date: 20240121
  Receipt Date: 20240610
  Transmission Date: 20240715
  Serious: Yes (Death, Life-Threatening, Hospitalization, Disabling)
  Sender: FDA-Public Use
  Company Number: RU-002147023-NVSC2021RU186019

PATIENT
  Age: 51 Year
  Sex: Female
  Weight: 89 kg

DRUGS (6)
  1. ANASTROZOLE [Suspect]
     Active Substance: ANASTROZOLE
     Indication: HER2 negative breast cancer
     Dosage: 1 MG, DAILY
     Route: 048
     Dates: start: 20200306, end: 20210721
  2. GOSERELIN [Suspect]
     Active Substance: GOSERELIN
     Indication: HER2 negative breast cancer
     Dosage: 3.6 MG, Q4W (EVERY 4 WEEKS)
     Route: 058
     Dates: start: 20200306, end: 20220722
  3. RIBOCICLIB [Suspect]
     Active Substance: RIBOCICLIB
     Indication: HER2 negative breast cancer
     Route: 065
  4. HEPTRAL [Concomitant]
     Active Substance: ADEMETIONINE
     Indication: Alanine aminotransferase increased
     Dosage: UNK
     Route: 065
     Dates: start: 20200506
  5. HEPTRAL [Concomitant]
     Active Substance: ADEMETIONINE
     Indication: Aspartate aminotransferase increased
  6. RIVAROXABAN [Concomitant]
     Active Substance: RIVAROXABAN
     Indication: Pulmonary thrombosis
     Dosage: UNK
     Route: 065
     Dates: start: 20201019

REACTIONS (1)
  - Embolism [Fatal]

NARRATIVE: CASE EVENT DATE: 20210729
